FAERS Safety Report 14214447 (Version 1)
Quarter: 2017Q4

REPORT INFORMATION
  Report Type: Report from Study
  Country: PL (occurrence: PL)
  Receive Date: 20171122
  Receipt Date: 20171122
  Transmission Date: 20180321
  Serious: Yes (Hospitalization)
  Sender: FDA-Public Use
  Company Number: PL-IPSEN BIOPHARMACEUTICALS, INC.-2017-14719

PATIENT
  Age: 53 Year
  Sex: Female
  Weight: 56 kg

DRUGS (2)
  1. SOMATULINE AUTOGEL 120 MG [Suspect]
     Active Substance: LANREOTIDE ACETATE
     Dosage: 120 MG
     Route: 030
     Dates: start: 20160705
  2. SOMATULINE AUTOGEL 120 MG [Suspect]
     Active Substance: LANREOTIDE ACETATE
     Indication: ACROMEGALY
     Dosage: 120 MG
     Route: 030
     Dates: start: 201404

REACTIONS (3)
  - Inappropriate schedule of drug administration [Unknown]
  - Incorrect route of drug administration [Unknown]
  - Cholecystitis acute [Recovered/Resolved]

NARRATIVE: CASE EVENT DATE: 201607
